FAERS Safety Report 7530108-3 (Version None)
Quarter: 2011Q2

REPORT INFORMATION
  Report Type: 
  Country: None (occurrence: None)
  Receive Date: 20110606
  Receipt Date: 20110606
  Transmission Date: 20111010
  Serious: Yes (Other)
  Sender: FDA-Public Use
  Company Number: None

PATIENT
  Sex: Female

DRUGS (3)
  1. BACTRIM DS [Suspect]
     Indication: LUNG DISORDER
     Dosage: 1 TABLET Q12 HOURS PO
     Route: 048
     Dates: start: 20110501, end: 20110514
  2. LEVOTHYROXINE SODIUM [Concomitant]
  3. LEVOFLOXACIN [Concomitant]

REACTIONS (6)
  - PYREXIA [None]
  - ASTHENIA [None]
  - URTICARIA [None]
  - PRURITUS [None]
  - RASH [None]
  - CANDIDIASIS [None]
